FAERS Safety Report 16244956 (Version 1)
Quarter: 2019Q2

REPORT INFORMATION
  Report Type: Report from Study
  Country: None (occurrence: RU)
  Receive Date: 20190426
  Receipt Date: 20190426
  Transmission Date: 20190711
  Serious: Yes (Hospitalization)
  Sender: FDA-Public Use
  Company Number: RU-ABBVIE-19P-251-2745192-00

PATIENT
  Age: 59 Year
  Sex: Male
  Weight: 96 kg

DRUGS (3)
  1. ESOMEPRAZOLUM [Concomitant]
     Indication: PROPHYLAXIS
     Route: 048
     Dates: start: 1997
  2. RISANKIZUMAB [Suspect]
     Active Substance: RISANKIZUMAB
     Indication: PSORIASIS
     Dosage: WK 0,4,16
     Route: 058
     Dates: start: 20180924
  3. NISE [Concomitant]
     Active Substance: NIMESULIDE
     Indication: PSORIATIC ARTHROPATHY
     Route: 048
     Dates: start: 1997

REACTIONS (1)
  - Pneumonia [Recovered/Resolved]

NARRATIVE: CASE EVENT DATE: 20190123
